FAERS Safety Report 5191443-X (Version None)
Quarter: 2006Q4

REPORT INFORMATION
  Report Type: 
  Country: None (occurrence: None)
  Receive Date: 20061226
  Receipt Date: 20061214
  Transmission Date: 20070319
  Serious: Yes (Hospitalization)
  Sender: FDA-Public Use
  Company Number: JP-MERCK-0612USA03205

PATIENT
  Age: 79 Year
  Sex: Female

DRUGS (5)
  1. FOSAMAX [Suspect]
     Route: 048
     Dates: start: 20060101
  2. ASPIRIN [Concomitant]
     Route: 048
  3. ONEALFA [Concomitant]
     Route: 048
  4. OMEPRAL [Concomitant]
     Route: 048
  5. NATRIX [Concomitant]
     Route: 048

REACTIONS (4)
  - DIZZINESS [None]
  - HEAD INJURY [None]
  - LOSS OF CONSCIOUSNESS [None]
  - NAUSEA [None]
